FAERS Safety Report 6248154-9 (Version None)
Quarter: 2009Q2

REPORT INFORMATION
  Report Type: 
  Country: None (occurrence: None)
  Receive Date: 20090624
  Receipt Date: 20090624
  Transmission Date: 20091009
  Serious: No
  Sender: FDA-Public Use
  Company Number: None

PATIENT
  Age: 68 Year
  Sex: Male
  Weight: 135.6255 kg

DRUGS (1)
  1. LEVOTHYROXINE SODIUM [Suspect]

REACTIONS (10)
  - BALANCE DISORDER [None]
  - DISORIENTATION [None]
  - DRY MOUTH [None]
  - GLOSSITIS [None]
  - GLOSSODYNIA [None]
  - HYPERSENSITIVITY [None]
  - ORAL DISCOMFORT [None]
  - PAIN IN EXTREMITY [None]
  - REACTION TO DRUG EXCIPIENTS [None]
  - SWOLLEN TONGUE [None]
